FAERS Safety Report 16733613 (Version 2)
Quarter: 2019Q4

REPORT INFORMATION
  Report Type: Spontaneous
  Country: US (occurrence: US)
  Receive Date: 20190823
  Receipt Date: 20191226
  Transmission Date: 20200122
  Serious: No
  Sender: FDA-Public Use
  Company Number: US-TEVA-2019-US-1095188

PATIENT
  Sex: Male

DRUGS (1)
  1. GRANIX [Suspect]
     Active Substance: TBO-FILGRASTIM
     Indication: PRODUCT USED FOR UNKNOWN INDICATION
     Dosage: ABOUT 2 YEARS AGO
     Route: 065

REACTIONS (4)
  - Pelvic pain [Unknown]
  - Testicular pain [Unknown]
  - Irritable bowel syndrome [Unknown]
  - Abdominal pain [Unknown]
